FAERS Safety Report 15868091 (Version 3)
Quarter: 2019Q2

REPORT INFORMATION
  Report Type: Spontaneous
  Country: US (occurrence: US)
  Receive Date: 20190125
  Receipt Date: 20190416
  Transmission Date: 20190711
  Serious: Yes (Hospitalization, Other)
  Sender: FDA-Public Use
  Company Number: US-ASTRAZENECA-2018SF14126

PATIENT
  Age: 22350 Day
  Sex: Female

DRUGS (23)
  1. LISINOPRIL. [Concomitant]
     Active Substance: LISINOPRIL
     Dates: start: 20100708
  2. PRILOSEC OTC [Suspect]
     Active Substance: OMEPRAZOLE MAGNESIUM
     Indication: GASTROOESOPHAGEAL REFLUX DISEASE
     Route: 048
     Dates: start: 20070713, end: 20100619
  3. FLUCONAZOLE. [Concomitant]
     Active Substance: FLUCONAZOLE
     Dates: start: 2007, end: 2008
  4. AMITRIPTYLINE [Concomitant]
     Active Substance: AMITRIPTYLINE
     Indication: PAIN
     Dates: start: 2007, end: 2010
  5. SULFAMETHOXAZOLE [Concomitant]
     Active Substance: SULFAMETHOXAZOLE
     Indication: ANTIBIOTIC THERAPY
     Dates: start: 2008
  6. KLOR-CON [Concomitant]
     Active Substance: POTASSIUM CHLORIDE
     Indication: HYPOKALAEMIA
     Dates: start: 2009
  7. PRILOSEC OTC [Suspect]
     Active Substance: OMEPRAZOLE MAGNESIUM
     Indication: GASTROOESOPHAGEAL REFLUX DISEASE
     Dosage: 20 MG
     Route: 048
     Dates: start: 20100920
  8. LOPRESSOR [Concomitant]
     Active Substance: METOPROLOL TARTRATE
  9. SYMBICORT [Concomitant]
     Active Substance: BUDESONIDE\FORMOTEROL FUMARATE DIHYDRATE
     Dates: start: 20100824
  10. KLOR-CON [Concomitant]
     Active Substance: POTASSIUM CHLORIDE
  11. PRILOSEC OTC [Suspect]
     Active Substance: OMEPRAZOLE MAGNESIUM
     Indication: GASTROOESOPHAGEAL REFLUX DISEASE
     Route: 048
     Dates: start: 200707, end: 201006
  12. PRILOSEC OTC [Suspect]
     Active Substance: OMEPRAZOLE MAGNESIUM
     Indication: GASTROOESOPHAGEAL REFLUX DISEASE
     Dosage: 20 MG
     Route: 048
     Dates: start: 20110727
  13. LEVOTHYROXINE. [Concomitant]
     Active Substance: LEVOTHYROXINE
     Dates: start: 20100920
  14. METOPROLOL. [Concomitant]
     Active Substance: METOPROLOL
     Dates: start: 20100708
  15. TRAMADOL. [Concomitant]
     Active Substance: TRAMADOL
     Dates: start: 20110223
  16. HYDROCODONE [Concomitant]
     Active Substance: HYDROCODONE
     Indication: PAIN
     Dates: start: 2007, end: 2008
  17. PROVENTIL [Concomitant]
     Active Substance: ALBUTEROL
     Dates: start: 20110223
  18. SERTRALINE [Concomitant]
     Active Substance: SERTRALINE HYDROCHLORIDE
  19. SIMVASTATIN. [Concomitant]
     Active Substance: SIMVASTATIN
  20. LISINOPRIL. [Concomitant]
     Active Substance: LISINOPRIL
     Indication: BLOOD PRESSURE MEASUREMENT
     Dates: start: 2007, end: 2008
  21. FUROSEMIDE. [Concomitant]
     Active Substance: FUROSEMIDE
  22. BACLOFEN. [Concomitant]
     Active Substance: BACLOFEN
     Dates: start: 20110311
  23. METOPROLOL. [Concomitant]
     Active Substance: METOPROLOL
     Indication: BLOOD PRESSURE MEASUREMENT
     Dates: start: 2007, end: 2008

REACTIONS (4)
  - Acute kidney injury [Unknown]
  - Chronic kidney disease [Not Recovered/Not Resolved]
  - End stage renal disease [Unknown]
  - Renal failure [Unknown]

NARRATIVE: CASE EVENT DATE: 20110405
